FAERS Safety Report 5180181-5 (Version None)
Quarter: 2006Q4

REPORT INFORMATION
  Report Type: 
  Country: None (occurrence: None)
  Receive Date: 20061212
  Receipt Date: 20061206
  Transmission Date: 20070319
  Serious: Yes (Hospitalization)
  Sender: FDA-Public Use
  Company Number: GXKR2006DE07913

PATIENT
  Sex: Female

DRUGS (2)
  1. GABAPENTIN [Suspect]
     Dosage: ORAL
     Route: 048
  2. KEPPRA [Concomitant]

REACTIONS (2)
  - CROHN'S DISEASE [None]
  - ILEUS [None]
